FAERS Safety Report 17192184 (Version 1)
Quarter: 2019Q4

REPORT INFORMATION
  Report Type: Report from Study
  Country: AT (occurrence: AT)
  Receive Date: 20191223
  Receipt Date: 20191223
  Transmission Date: 20200122
  Serious: Yes (Other)
  Sender: FDA-Public Use
  Company Number: AT-PFIZER INC-2019545479

PATIENT
  Age: 43 Year
  Sex: Female
  Weight: 65 kg

DRUGS (17)
  1. TAXOL [Suspect]
     Active Substance: PACLITAXEL
     Indication: HER-2 POSITIVE BREAST CANCER
     Dosage: 134.59 MG/KG, UNK
     Route: 042
     Dates: start: 20181017
  2. FORTECORTIN [DEXAMETHASONE] [Concomitant]
     Active Substance: DEXAMETHASONE
     Dosage: UNK; ONGOING = CHECKED
     Route: 065
     Dates: start: 20181017
  3. EMEND [Concomitant]
     Active Substance: APREPITANT
     Dosage: UNK; ONGOING = CHECKED
     Route: 065
     Dates: start: 20181120
  4. ASTEC [BUPRENORPHINE] [Concomitant]
     Dosage: UNK; ONGOING = CHECKED
     Route: 065
     Dates: start: 20181023
  5. MOLAXOLE [Concomitant]
     Active Substance: POLYETHYLENE GLYCOL 3350\POTASSIUM CHLORIDE\SODIUM BICARBONATE\SODIUM CHLORIDE
     Dosage: UNK; ONGOING = CHECKED
     Route: 065
     Dates: start: 20181023
  6. TRASTUZUMAB. [Suspect]
     Active Substance: TRASTUZUMAB
     Indication: HER-2 POSITIVE BREAST CANCER
     Dosage: 390 MG/KG, EVERY 3 WEEKS
     Route: 041
     Dates: start: 20181016
  7. XGEVA [Suspect]
     Active Substance: DENOSUMAB
     Indication: HER-2 POSITIVE BREAST CANCER
     Dosage: 120 MG/KG, CYCLIC;  EVERY 4 WEEKS
     Route: 058
     Dates: start: 20190326
  8. PERTUZUMAB. [Suspect]
     Active Substance: PERTUZUMAB
     Indication: HER-2 POSITIVE BREAST CANCER
     Dosage: 420 MG/KG, EVERY 3 WEEKS
     Route: 042
     Dates: start: 20181016
  9. ZOFRAN [Concomitant]
     Active Substance: ONDANSETRON HYDROCHLORIDE
     Dosage: UNK; ONGOING = CHECKED
     Route: 065
     Dates: start: 20181017
  10. PASPERTIN [METOCLOPRAMIDE HYDROCHLORIDE] [Concomitant]
     Active Substance: METOCLOPRAMIDE HYDROCHLORIDE
     Dosage: UNK; ONGOING = CHECKED
     Route: 065
     Dates: start: 20181023
  11. ULSAL [Concomitant]
     Active Substance: RANITIDINE HYDROCHLORIDE
     Dosage: UNK; ONGOING = CHECKED
     Route: 065
     Dates: start: 20181017
  12. NOVALGIN (METAMIZOLE SODIUM) [Concomitant]
     Active Substance: METAMIZOLE SODIUM
     Dosage: UNK; ONGOING = CHECKED
     Route: 065
     Dates: start: 20181023
  13. TEMGESIC [Concomitant]
     Active Substance: BUPRENORPHINE HYDROCHLORIDE
     Dosage: UNK; ONGOING = CHECKED
     Route: 065
     Dates: start: 20181023
  14. NEURONTIN [Concomitant]
     Active Substance: GABAPENTIN
     Dosage: UNK; ONGOING = CHECKED
     Route: 065
     Dates: start: 20181023
  15. DIBONDRIN [Concomitant]
     Active Substance: DIPHENHYDRAMINE HYDROCHLORIDE
     Dosage: UNK; ONGOING = CHECKED
     Route: 065
  16. PARACODIN [DIHYDROCODEINE] [Concomitant]
     Dosage: UNK; ONGOING = CHECKED
     Route: 065
     Dates: start: 20180715
  17. ZOFRAN [Concomitant]
     Active Substance: ONDANSETRON HYDROCHLORIDE
     Dosage: UNK; ONGOING = CHECKED
     Route: 065
     Dates: start: 20181023

REACTIONS (1)
  - Erysipelas [Recovered/Resolved]

NARRATIVE: CASE EVENT DATE: 20190925
